FAERS Safety Report 18664341 (Version 1)
Quarter: 2020Q4

REPORT INFORMATION
  Report Type: Report from Study
  Country: US (occurrence: US)
  Receive Date: 20201225
  Receipt Date: 20201225
  Transmission Date: 20210114
  Serious: No
  Sender: FDA-Public Use
  Company Number: NVSC2020US334355

PATIENT
  Sex: Male

DRUGS (1)
  1. ENTRESTO [Suspect]
     Active Substance: SACUBITRIL\VALSARTAN
     Indication: CARDIAC FAILURE CHRONIC
     Dosage: 50 (24/26) MG, BID
     Route: 048
     Dates: start: 202008

REACTIONS (3)
  - Concomitant disease aggravated [Unknown]
  - Cough [Unknown]
  - Allergic sinusitis [Unknown]
